FAERS Safety Report 13136514 (Version 1)
Quarter: 2017Q1

REPORT INFORMATION
  Report Type: Report from Study
  Country: CN (occurrence: CN)
  Receive Date: 20170122
  Receipt Date: 20170122
  Transmission Date: 20170428
  Serious: Yes (Death, Hospitalization)
  Sender: FDA-Public Use
  Company Number: CN-ROCHE-1694184

PATIENT
  Sex: Female
  Weight: 62.5 kg

DRUGS (2)
  1. AVASTIN [Suspect]
     Active Substance: BEVACIZUMAB
     Indication: COLON CANCER
     Route: 041
     Dates: start: 20150328
  2. AVASTIN [Suspect]
     Active Substance: BEVACIZUMAB
     Indication: METASTASES TO PERITONEUM
     Route: 041
     Dates: start: 20160328

REACTIONS (6)
  - Cholecystitis [Unknown]
  - Bile duct obstruction [Fatal]
  - Pancreatitis [Unknown]
  - Discomfort [Unknown]
  - Cholelithiasis [Unknown]
  - Pyrexia [Recovered/Resolved]
